FAERS Safety Report 9805804 (Version 1)
Quarter: 2014Q1

REPORT INFORMATION
  Report Type: Spontaneous
  Country: ES (occurrence: ES)
  Receive Date: 20140109
  Receipt Date: 20140109
  Transmission Date: 20141002
  Serious: Yes (Hospitalization)
  Sender: FDA-Public Use
  Company Number: ES-SA-2014SA000553

PATIENT
  Age: 90 Year
  Sex: Female

DRUGS (7)
  1. CLEXANE [Suspect]
     Indication: ATRIAL FIBRILLATION
     Dosage: 20MG
     Route: 058
     Dates: start: 20130312, end: 20130317
  2. FUROSEMIDA [Concomitant]
     Indication: CARDIAC FAILURE CONGESTIVE
     Dosage: 20MG/12H
     Route: 042
     Dates: start: 20130313, end: 20130317
  3. CEFEPIME [Concomitant]
     Indication: POST PROCEDURAL INFECTION
     Dosage: 1GR/8H
     Route: 042
     Dates: start: 20130313
  4. TEICOPLANIN [Concomitant]
     Indication: POST PROCEDURAL INFECTION
     Dosage: 400MG
     Route: 042
     Dates: start: 20130313
  5. LORMETAZEPAM [Concomitant]
     Indication: INSOMNIA
     Dosage: 1MG CENA
     Route: 048
     Dates: start: 20130312
  6. PARACETAMOL [Concomitant]
     Indication: PAIN
     Dosage: 1GR/8H
     Route: 042
     Dates: start: 20130305
  7. PANTOPRAZOLE [Concomitant]
     Indication: PROPHYLAXIS AGAINST GASTROINTESTINAL ULCER
     Dosage: 1AMP
     Route: 042
     Dates: start: 20130305

REACTIONS (1)
  - Hypoglycaemia [Recovered/Resolved]
